FAERS Safety Report 9159529 (Version 1)
Quarter: 2013Q1

REPORT INFORMATION
  Report Type: Spontaneous
  Country: IL (occurrence: IL)
  Receive Date: 20130313
  Receipt Date: 20130313
  Transmission Date: 20140127
  Serious: Yes (Death, Hospitalization)
  Sender: FDA-Public Use
  Company Number: PHHY2013IL019852

PATIENT
  Age: 64 Year
  Sex: Male

DRUGS (1)
  1. SANDOSTATIN LAR [Suspect]
     Indication: CARCINOID TUMOUR
     Dosage: 40 MG, Q2W
     Dates: start: 20110126, end: 20130228

REACTIONS (4)
  - Death [Fatal]
  - Ascites [Unknown]
  - Malignant neoplasm progression [Unknown]
  - Abdominal pain [Unknown]
